FAERS Safety Report 10155704 (Version 2)
Quarter: 2014Q2

REPORT INFORMATION
  Report Type: Report from Study
  Country: JP (occurrence: JP)
  Receive Date: 20140506
  Receipt Date: 20140515
  Transmission Date: 20141212
  Serious: Yes (Hospitalization)
  Sender: FDA-Public Use
  Company Number: JP-B.I. PHARMACEUTICALS,INC./RIDGEFIELD-2014-BI-19495NB

PATIENT
  Age: 73 Year
  Sex: Male
  Weight: 65 kg

DRUGS (13)
  1. PRAZAXA [Suspect]
     Indication: ATRIAL FIBRILLATION
     Dosage: 220 MG
     Route: 048
     Dates: start: 20131023
  2. HALFDIGOXIN [Concomitant]
     Dosage: 0.125 MG
     Route: 048
  3. DIOVAN [Concomitant]
     Dosage: 40 MG
     Route: 048
  4. LUPRAC [Concomitant]
     Dosage: 4 MG
     Route: 048
  5. AMIODARONE HYDROCHLORIDE [Concomitant]
     Dosage: 100 MG
     Route: 048
  6. LASIX [Concomitant]
     Dosage: 80 MG
     Route: 048
  7. HERBESSER [Concomitant]
     Dosage: 100 MG
     Route: 048
  8. MARZULENE-S [Concomitant]
     Dosage: 1.5 MG
     Route: 048
  9. PIMOBENDAN [Concomitant]
     Dosage: 2.5 MG
     Route: 048
  10. FRANDOL S [Concomitant]
     Dosage: DOSE PER APPLICATION AND DAILY DOSE: 1DF
     Route: 062
  11. ITOROL [Concomitant]
     Dosage: 40 MG
     Route: 048
  12. MYOCOR:SPRAY [Concomitant]
     Route: 060
  13. TAKEPRON [Concomitant]
     Dosage: 30 MG
     Route: 048
     Dates: start: 20131226

REACTIONS (2)
  - Cerebral infarction [Not Recovered/Not Resolved]
  - Abdominal pain upper [Unknown]
